FAERS Safety Report 25340569 (Version 2)
Quarter: 2025Q2

REPORT INFORMATION
  Report Type: Spontaneous
  Country: US (occurrence: US)
  Receive Date: 20250521
  Receipt Date: 20250603
  Transmission Date: 20250716
  Serious: No
  Sender: LEO PHARM
  Company Number: US-LEO Pharma-379918

PATIENT
  Age: 32 Year
  Sex: Female

DRUGS (2)
  1. ADBRY [Suspect]
     Active Substance: TRALOKINUMAB-LDRM
     Indication: Dermatitis atopic
     Dosage: STARTED 02/2025
     Dates: start: 202502
  2. SPIRONOLACTONE [Concomitant]
     Active Substance: SPIRONOLACTONE
     Indication: Product used for unknown indication

REACTIONS (2)
  - Dermatitis atopic [Not Recovered/Not Resolved]
  - Fatigue [Unknown]
